FAERS Safety Report 5234196-9 (Version None)
Quarter: 2007Q1

REPORT INFORMATION
  Report Type: 
  Country: None (occurrence: None)
  Receive Date: 20070209
  Receipt Date: 20070130
  Transmission Date: 20070707
  Serious: Yes (Hospitalization, Other)
  Sender: FDA-Public Use
  Company Number: FR-JNJFOC-20070102099

PATIENT
  Age: 64 Year
  Sex: Female

DRUGS (3)
  1. CAELYX [Suspect]
     Route: 042
  2. CAELYX [Suspect]
     Route: 042
  3. CAELYX [Suspect]
     Indication: BREAST CANCER METASTATIC
     Route: 042

REACTIONS (1)
  - TOXIC EPIDERMAL NECROLYSIS [None]
